FAERS Safety Report 9187009 (Version 1)
Quarter: 2013Q1

REPORT INFORMATION
  Report Type: Spontaneous
  Country: BR (occurrence: BR)
  Receive Date: 20130325
  Receipt Date: 20130325
  Transmission Date: 20140127
  Serious: Yes (Other)
  Sender: FDA-Public Use
  Company Number: BR-PFIZER INC-2013094285

PATIENT
  Age: 45 Year
  Sex: Female

DRUGS (1)
  1. PRISTIQ [Suspect]
     Indication: DEPRESSION
     Dosage: 100 MG, 1X/DAY
     Route: 048
     Dates: start: 20130304

REACTIONS (8)
  - Asphyxia [Unknown]
  - Sensation of foreign body [Unknown]
  - Headache [Unknown]
  - Pyrexia [Unknown]
  - Feeling hot [Unknown]
  - Chills [Unknown]
  - Nausea [Unknown]
  - Malaise [Unknown]
